FAERS Safety Report 21055108 (Version 11)
Quarter: 2024Q1

REPORT INFORMATION
  Report Type: Report from Study
  Country: US (occurrence: US)
  Receive Date: 20220707
  Receipt Date: 20240322
  Transmission Date: 20240409
  Serious: Yes (Hospitalization)
  Sender: FDA-Public Use
  Company Number: US-ACADIA PHARMACEUTICALS INC.-ACA-2022-PIM-002094

PATIENT
  Sex: Male

DRUGS (6)
  1. NUPLAZID [Suspect]
     Active Substance: PIMAVANSERIN TARTRATE
     Indication: Parkinson^s disease psychosis
     Dosage: 34 MILLIGRAM, QD
     Route: 048
     Dates: start: 20220601
  2. NUPLAZID [Suspect]
     Active Substance: PIMAVANSERIN TARTRATE
     Dosage: 34 MILLIGRAM, QD
     Route: 048
     Dates: start: 20220616
  3. NUPLAZID [Suspect]
     Active Substance: PIMAVANSERIN TARTRATE
     Dosage: 34 MILLIGRAM, QD
     Route: 048
     Dates: start: 2023
  4. EXELON [Concomitant]
     Active Substance: RIVASTIGMINE TARTRATE
     Dosage: DIS 4.6MG/24
  5. EXELON [Concomitant]
     Active Substance: RIVASTIGMINE TARTRATE
     Dosage: 96
  6. SEROQUEL [Concomitant]
     Active Substance: QUETIAPINE FUMARATE
     Dosage: 100 MILLIGRAM

REACTIONS (11)
  - Mental disorder [Unknown]
  - Nonspecific reaction [Not Recovered/Not Resolved]
  - Hallucination [Unknown]
  - Gait disturbance [Unknown]
  - Product dose omission issue [Recovered/Resolved]
  - Condition aggravated [Not Recovered/Not Resolved]
  - Parkinson^s disease [Recovered/Resolved]
  - Product dose omission issue [Not Recovered/Not Resolved]
  - Dry eye [Unknown]
  - Confusional state [Unknown]
  - Hallucination [Not Recovered/Not Resolved]
